FAERS Safety Report 11938289 (Version 6)
Quarter: 2016Q3

REPORT INFORMATION
  Report Type: Report from Study
  Country: CA (occurrence: CA)
  Receive Date: 20160122
  Receipt Date: 20160930
  Transmission Date: 20161109
  Serious: Yes (Death, Hospitalization)
  Sender: FDA-Public Use
  Company Number: CA-ROCHE-ITM201502IM010295

PATIENT
  Age: 90 Year
  Sex: Female
  Weight: 50 kg

DRUGS (11)
  1. ESBRIET [Suspect]
     Active Substance: PIRFENIDONE
     Route: 048
     Dates: start: 20150717, end: 201601
  2. ESBRIET [Suspect]
     Active Substance: PIRFENIDONE
     Indication: IDIOPATHIC PULMONARY FIBROSIS
     Route: 048
     Dates: start: 20150128
  3. LOSEC [Concomitant]
     Active Substance: OMEPRAZOLE
  4. ASA [Concomitant]
     Active Substance: ASPIRIN
     Dosage: 81 MG
     Route: 065
  5. ESBRIET [Suspect]
     Active Substance: PIRFENIDONE
     Route: 048
     Dates: start: 20150204
  6. ADVAIR HFA [Concomitant]
     Active Substance: FLUTICASONE PROPIONATE\SALMETEROL XINAFOATE
  7. ESBRIET [Suspect]
     Active Substance: PIRFENIDONE
     Route: 048
     Dates: start: 20150217
  8. SYNTHROID [Concomitant]
     Active Substance: LEVOTHYROXINE SODIUM
  9. ESBRIET [Suspect]
     Active Substance: PIRFENIDONE
     Route: 048
     Dates: start: 20150211
  10. COZAAR [Concomitant]
     Active Substance: LOSARTAN POTASSIUM
  11. VENTOLIN [Concomitant]
     Active Substance: ALBUTEROL SULFATE

REACTIONS (14)
  - Fatigue [Unknown]
  - Hypophagia [Unknown]
  - Dizziness [Not Recovered/Not Resolved]
  - Asthenia [Unknown]
  - Death [Fatal]
  - Weight decreased [Unknown]
  - Lethargy [Unknown]
  - Malaise [Unknown]
  - Diverticulitis [Unknown]
  - Colonic abscess [Unknown]
  - Pulmonary function test decreased [Unknown]
  - Decreased appetite [Not Recovered/Not Resolved]
  - Dyspnoea [Not Recovered/Not Resolved]
  - Nausea [Not Recovered/Not Resolved]

NARRATIVE: CASE EVENT DATE: 201502
